FAERS Safety Report 19730121 (Version 4)
Quarter: 2022Q2

REPORT INFORMATION
  Report Type: Spontaneous
  Country: US (occurrence: None)
  Receive Date: 20210820
  Receipt Date: 20220419
  Transmission Date: 20220721
  Serious: Yes (Other)
  Sender: FDA-Public Use
  Company Number: 2018SF65486

PATIENT
  Age: 66 Year
  Sex: Female
  Weight: 107 kg

DRUGS (22)
  1. NEXIUM [Suspect]
     Active Substance: ESOMEPRAZOLE MAGNESIUM
     Indication: Gastrooesophageal reflux disease
     Route: 048
     Dates: start: 2016
  2. NEXIUM [Suspect]
     Active Substance: ESOMEPRAZOLE MAGNESIUM
     Indication: Gastrooesophageal reflux disease
     Route: 048
     Dates: start: 20160211
  3. NEXIUM [Suspect]
     Active Substance: ESOMEPRAZOLE MAGNESIUM
     Indication: Gastrooesophageal reflux disease
     Dosage: GENERIC
     Route: 065
     Dates: start: 2016
  4. BENICAR [Concomitant]
     Active Substance: OLMESARTAN MEDOXOMIL
     Dates: start: 20160107
  5. FUROSEMIDE [Concomitant]
     Active Substance: FUROSEMIDE
     Dates: start: 20160111
  6. AMOXICILLIN\CLAVULANATE POTASSIUM [Concomitant]
     Active Substance: AMOXICILLIN\CLAVULANATE POTASSIUM
     Dates: start: 20160107
  7. HYDROCOD/ACETAM [Concomitant]
     Dates: start: 20160125
  8. POTASSIUM CHLORIDE [Concomitant]
     Active Substance: POTASSIUM CHLORIDE
     Indication: Blood potassium decreased
     Route: 065
     Dates: start: 2016, end: 2021
  9. LEVOFLOXACIN [Concomitant]
     Active Substance: LEVOFLOXACIN
     Indication: Antibiotic therapy
     Route: 065
     Dates: start: 2016
  10. TOBRAMYCIN [Concomitant]
     Active Substance: TOBRAMYCIN
     Indication: Eye infection
     Route: 065
     Dates: start: 2016
  11. VENTOLIN [Concomitant]
     Active Substance: ALBUTEROL SULFATE
     Indication: Routine health maintenance
     Route: 065
     Dates: start: 2016
  12. VENTOLIN [Concomitant]
     Active Substance: ALBUTEROL SULFATE
     Indication: Routine health maintenance
     Route: 065
     Dates: start: 2017
  13. AMPICILLIN [Concomitant]
     Active Substance: AMPICILLIN
     Indication: Routine health maintenance
     Route: 065
     Dates: start: 2016
  14. AMPICILLIN [Concomitant]
     Active Substance: AMPICILLIN
     Indication: Routine health maintenance
     Route: 065
     Dates: start: 2017
  15. ALPRAZOLAM [Concomitant]
     Active Substance: ALPRAZOLAM
     Indication: Anxiety
     Route: 065
     Dates: start: 2016, end: 2021
  16. ATORVASTATIN [Concomitant]
     Active Substance: ATORVASTATIN
     Indication: Blood cholesterol increased
     Route: 065
     Dates: start: 2017
  17. AZITHROMYCIN [Concomitant]
     Active Substance: AZITHROMYCIN
     Indication: Antibiotic therapy
     Route: 065
     Dates: start: 2017
  18. METFORMIN [Concomitant]
     Active Substance: METFORMIN HYDROCHLORIDE
     Indication: Diabetes mellitus
     Route: 065
     Dates: start: 2017
  19. ASPIRIN [Concomitant]
     Active Substance: ASPIRIN
     Indication: Diabetes mellitus
     Route: 065
     Dates: start: 2017
  20. NIZATIDINE [Concomitant]
     Active Substance: NIZATIDINE
  21. FAMOTIDINE [Concomitant]
     Active Substance: FAMOTIDINE
  22. RANITIDINE [Concomitant]
     Active Substance: RANITIDINE

REACTIONS (3)
  - Chronic kidney disease [Unknown]
  - Renal failure [Unknown]
  - Rebound acid hypersecretion [Unknown]

NARRATIVE: CASE EVENT DATE: 20170101
